FAERS Safety Report 6164880-4 (Version None)
Quarter: 2009Q2

REPORT INFORMATION
  Report Type: 
  Country: None (occurrence: None)
  Receive Date: 20090423
  Receipt Date: 20090416
  Transmission Date: 20091009
  Serious: Yes (Hospitalization)
  Sender: FDA-Public Use
  Company Number: US-ASTRAZENECA-2009UW09663

PATIENT
  Age: 55 Year
  Sex: Female
  Weight: 40.8 kg

DRUGS (2)
  1. NEXIUM [Suspect]
     Indication: GASTROOESOPHAGEAL REFLUX DISEASE
     Route: 048
     Dates: start: 20010201
  2. RHINOCORT [Suspect]
     Indication: RHINITIS ALLERGIC
     Route: 045
     Dates: start: 20080601

REACTIONS (4)
  - CONVULSION [None]
  - FALL [None]
  - MYOCARDIAL INFARCTION [None]
  - SUBDURAL HAEMATOMA [None]
